FAERS Safety Report 17169811 (Version 11)
Quarter: 2020Q2

REPORT INFORMATION
  Report Type: Spontaneous
  Country: US (occurrence: US)
  Receive Date: 20191218
  Receipt Date: 20200422
  Transmission Date: 20200713
  Serious: No
  Sender: FDA-Public Use
  Company Number: US-PFIZER INC-2019541353

PATIENT
  Age: 74 Year
  Sex: Male
  Weight: 91.6 kg

DRUGS (88)
  1. ATENOLOL. [Suspect]
     Active Substance: ATENOLOL
     Indication: HAEMOGLOBIN ABNORMAL
  2. XELJANZ [Suspect]
     Active Substance: TOFACITINIB CITRATE
     Dosage: 0.5DF, 2X/DAY (CUT IN HALF AND TAKE 5MG IN THE MORNING AND 5MG IN THE EVENING)
  3. XELJANZ [Suspect]
     Active Substance: TOFACITINIB CITRATE
     Dosage: 10 MG
     Route: 065
     Dates: start: 20191120
  4. XELJANZ [Suspect]
     Active Substance: TOFACITINIB CITRATE
     Dosage: 10 MG
     Route: 065
     Dates: start: 20190919
  5. PROZAC [Suspect]
     Active Substance: FLUOXETINE HYDROCHLORIDE
     Indication: ANXIETY
     Dosage: 20 MG, 1X/DAY (20MG CAPSULE BY MOUTH AT BEDTIME)
     Route: 048
     Dates: start: 20190310
  6. PREDNISONE. [Suspect]
     Active Substance: PREDNISONE
     Indication: COLITIS ULCERATIVE
     Dosage: 20 MG, 3X/DAY
     Route: 065
     Dates: start: 20180915
  7. PREDNISONE. [Suspect]
     Active Substance: PREDNISONE
     Dosage: 5 MG, 3X/DAY
     Route: 065
     Dates: start: 20180915, end: 20191212
  8. FLOMAX [Concomitant]
     Active Substance: TAMSULOSIN HYDROCHLORIDE
     Indication: PROSTATOMEGALY
     Dosage: 0.4 MG, 1X/DAY (0.4MG CAPSULE BY MOUTH AT BEDTIME)
     Route: 065
     Dates: start: 2016
  9. PROBIOTIC CHEWABLE [Concomitant]
     Dosage: UNK
     Dates: start: 2000
  10. PROBIOTIC 10 [Concomitant]
     Active Substance: DIETARY SUPPLEMENT\PROBIOTICS
     Dosage: UNK
     Dates: start: 2000
  11. CENTRUM SILVER [ASCORBIC ACID;BETACAROTENE;BIOTIN;CALCIUM;CHROMIUM;COL [Concomitant]
     Dosage: 1 DF, 1X/DAY (AFTER BREAKFAST)
     Route: 065
  12. LESCOL [Concomitant]
     Active Substance: FLUVASTATIN SODIUM
     Indication: ABDOMINAL PAIN UPPER
     Dosage: 250 MG, UNK
     Route: 065
  13. PANTOPRAZOLE SODIUM. [Concomitant]
     Active Substance: PANTOPRAZOLE SODIUM
     Indication: DIARRHOEA
  14. PREDNISONE. [Suspect]
     Active Substance: PREDNISONE
     Dosage: 5 MG, ALTERNATE DAY (FOR 2 WEEKS)/(ONCE DAILY W/BREAK)
  15. PREDNISONE. [Suspect]
     Active Substance: PREDNISONE
     Dosage: 10 MG, 3X/DAY
     Dates: start: 20190915
  16. VITAMIN C [Concomitant]
     Active Substance: ASCORBIC ACID
     Dosage: 1000 MG, 1X/DAY (AFTER BREAKFAST)
     Route: 065
  17. VITAMIN B12 [Concomitant]
     Active Substance: CYANOCOBALAMIN
     Dosage: 3000 UG, 1X/DAY (GUMMIES 3 AFTER BREAKFAST)
     Dates: start: 2014
  18. TYLENOL 8HR [Concomitant]
     Active Substance: ACETAMINOPHEN
     Dosage: UNK
     Dates: start: 2015
  19. FUROSEMIDE. [Concomitant]
     Active Substance: FUROSEMIDE
     Indication: SWELLING
     Dosage: 20MG. G TAB. A.M.
     Route: 065
     Dates: start: 20200107
  20. FEXOFENADINE [Concomitant]
     Active Substance: FEXOFENADINE HYDROCHLORIDE
     Indication: ABDOMINAL PAIN UPPER
     Dosage: UNK
     Route: 065
  21. FEXOFENADINE [Concomitant]
     Active Substance: FEXOFENADINE HYDROCHLORIDE
     Indication: ABDOMINAL PAIN
  22. HYDROCHLOROTHIAZIDE. [Concomitant]
     Active Substance: HYDROCHLOROTHIAZIDE
     Indication: ABDOMINAL PAIN UPPER
     Dosage: 250 MG
     Route: 065
  23. AMLODIPINE BESYLATE. [Concomitant]
     Active Substance: AMLODIPINE BESYLATE
     Indication: TACHYCARDIA
     Dosage: 2.5 MG, UNK
     Route: 065
  24. RANITIDINE. [Concomitant]
     Active Substance: RANITIDINE
     Indication: DIARRHOEA
  25. POLYSPORIN [Concomitant]
     Active Substance: BACITRACIN ZINC\POLYMYXIN B SULFATE
     Dosage: UNK
     Route: 065
  26. DIPEN [DILTIAZEM HYDROCHLORIDE] [Concomitant]
     Indication: DIZZINESS
     Dosage: 2.5 MG, UNK
     Route: 065
  27. ATENOLOL. [Suspect]
     Active Substance: ATENOLOL
     Indication: HEART RATE DECREASED
     Dosage: UNK
     Route: 048
  28. XELJANZ [Suspect]
     Active Substance: TOFACITINIB CITRATE
     Indication: COLITIS ULCERATIVE
     Dosage: 10 MG
     Route: 065
     Dates: start: 20190919, end: 2019
  29. XELJANZ [Suspect]
     Active Substance: TOFACITINIB CITRATE
     Dosage: 10 MG, UNK
  30. LEVOTHYROXINE. [Concomitant]
     Active Substance: LEVOTHYROXINE
     Indication: HYPOTHYROIDISM
     Dosage: 50 UG, 1X/DAY (50MCG EARLY IN THE MORNING)/(1 TAB EARLY A.M ON EMPTY STOMACH ONCE A DAY)
     Route: 065
     Dates: start: 2010
  31. FINASTERIDE. [Concomitant]
     Active Substance: FINASTERIDE
     Indication: PROSTATOMEGALY
     Dosage: 5 MG, 1X/DAY (5MG BY MOUTH AT BEDTIME)
     Route: 065
     Dates: start: 2016
  32. PROBIOTIC CHEWABLE [Concomitant]
     Dosage: UNK UNK, DAILY (EVERYDAY)
     Dates: start: 2005
  33. PROBIOTIC 10 [Concomitant]
     Active Substance: DIETARY SUPPLEMENT\PROBIOTICS
     Dosage: 2 DF, 1X/DAY (AT BREAKFAST)
     Route: 065
     Dates: start: 2005
  34. PROBIOTIC ACIDOPHILUS [LACTOBACILLUS ACIDOPHILUS] [Concomitant]
     Dosage: UNK
     Dates: start: 2000
  35. CIPROFLOXACIN. [Concomitant]
     Active Substance: CIPROFLOXACIN
     Indication: MYALGIA
     Dosage: UNK
     Route: 065
  36. PANTOPRAZOLE SODIUM. [Concomitant]
     Active Substance: PANTOPRAZOLE SODIUM
     Indication: ABDOMINAL DISCOMFORT
     Dosage: UNK
     Route: 065
  37. LATEX [Concomitant]
     Active Substance: NATURAL LATEX RUBBER
     Indication: RASH
     Dosage: UNK
     Route: 065
  38. XELJANZ [Suspect]
     Active Substance: TOFACITINIB CITRATE
     Dosage: 10 MG, 3X/DAY
     Route: 065
     Dates: start: 20190919
  39. LEVSIN [Concomitant]
     Active Substance: HYOSCYAMINE SULFATE
     Indication: RECTAL SPASM
     Dosage: 0.125 MG, AS NEEDED (1 TAB)
     Route: 065
     Dates: start: 2005
  40. TURMERIC [CURCUMA LONGA RHIZOME] [Concomitant]
     Active Substance: HERBALS\TURMERIC
     Dosage: UNK, AS NEEDED
     Route: 065
  41. FERROUS SULFATE. [Concomitant]
     Active Substance: FERROUS SULFATE
     Dosage: 324 MG, 1X/DAY
     Route: 065
     Dates: start: 20200124
  42. LACTAID FAST ACT [Concomitant]
     Active Substance: LACTASE
     Dosage: 9000 IU, AS NEEDED (ONLY PRIOR TO DAIRY)
     Route: 065
  43. DESITIN [CHLOROXYLENOL;HEXACHLOROPHENE] [Concomitant]
     Indication: RECTAL HAEMORRHAGE
     Dosage: UNK, AS NEEDED
     Dates: start: 2018
  44. HYDROCHLOROTHIAZIDE. [Concomitant]
     Active Substance: HYDROCHLOROTHIAZIDE
     Indication: ABDOMINAL PAIN
  45. LIPITOR [Concomitant]
     Active Substance: ATORVASTATIN CALCIUM
     Indication: ABDOMINAL PAIN UPPER
     Dosage: UNK
     Route: 065
  46. LEVOFLOXACIN. [Concomitant]
     Active Substance: LEVOFLOXACIN
     Indication: MUSCLE SPASMS
  47. XELJANZ [Suspect]
     Active Substance: TOFACITINIB CITRATE
     Dosage: 5 MG, 2X/DAY
     Dates: start: 20190919
  48. PREDNISONE. [Suspect]
     Active Substance: PREDNISONE
     Dosage: 20 MG, 2X/DAY
     Dates: start: 201807, end: 201912
  49. FLOMAX [Concomitant]
     Active Substance: TAMSULOSIN HYDROCHLORIDE
     Dosage: UNK
     Dates: start: 2017
  50. FINASTERIDE. [Concomitant]
     Active Substance: FINASTERIDE
     Dosage: UNK
     Dates: start: 2017
  51. PROBIOTIC ACIDOPHILUS [LACTOBACILLUS ACIDOPHILUS] [Concomitant]
     Dosage: 5 MG, DAILY (W/ BREAK 40MG)
     Route: 065
     Dates: start: 20180915
  52. CALMOSEPTINE [MENTHOL;ZINC OXIDE] [Concomitant]
     Dosage: UNK
     Dates: start: 2000
  53. LIPITOR [Concomitant]
     Active Substance: ATORVASTATIN CALCIUM
     Indication: DIARRHOEA
  54. NEOSPORIN [Concomitant]
     Active Substance: BACITRACIN ZINC\NEOMYCIN SULFATE\POLYMYXIN B SULFATE
     Indication: ERYTHEMA
     Dosage: UNK
     Route: 065
  55. XELJANZ [Suspect]
     Active Substance: TOFACITINIB CITRATE
     Dosage: 10 MG
     Route: 065
     Dates: start: 20191120
  56. PROZAC [Suspect]
     Active Substance: FLUOXETINE HYDROCHLORIDE
     Indication: STRESS
     Dosage: 20 MG, 1X/DAY (AT BEDTIME)
     Route: 065
     Dates: start: 20191210
  57. LEVOTHYROXINE. [Concomitant]
     Active Substance: LEVOTHYROXINE
     Dosage: UNK
     Dates: start: 2011
  58. TURMERIC [CURCUMA LONGA RHIZOME] [Concomitant]
     Active Substance: HERBALS\TURMERIC
     Dosage: 500 MG, 1X/DAY (AT BREAKFAST)
     Route: 065
  59. VITAMIN B12 [Concomitant]
     Active Substance: CYANOCOBALAMIN
     Dosage: UNK, DAILY
     Dates: start: 2014
  60. TYLENOL 8HR [Concomitant]
     Active Substance: ACETAMINOPHEN
     Indication: ARTHRITIS
     Dosage: 1950 MG, AS NEEDED (650 MG CAPLETS (3))
     Route: 065
  61. CALMOSEPTINE [MENTHOL;ZINC OXIDE] [Concomitant]
     Indication: DERMATITIS CONTACT
     Dosage: UNK, AS NEEDED (0.44 %-20.625%)
     Route: 061
  62. LACTAID FAST ACT [Concomitant]
     Active Substance: LACTASE
     Dosage: UNK
     Dates: start: 2000
  63. FLAGYL [METRONIDAZOLE BENZOATE] [Concomitant]
     Active Substance: METRONIDAZOLE BENZOATE
     Indication: DIARRHOEA
     Dosage: 250 MG
     Route: 065
  64. LIPITOR [Concomitant]
     Active Substance: ATORVASTATIN CALCIUM
     Indication: HAEMOGLOBIN ABNORMAL
  65. RANITIDINE. [Concomitant]
     Active Substance: RANITIDINE
     Indication: ABDOMINAL DISCOMFORT
     Dosage: UNK
     Route: 065
  66. ROCEPHINE [Concomitant]
     Active Substance: CEFTRIAXONE SODIUM
     Indication: RASH PRURITIC
     Dosage: UNK
     Route: 065
  67. XELJANZ [Suspect]
     Active Substance: TOFACITINIB CITRATE
     Dosage: 10 MG, DAILY (TAKE HALF OF THE 10MG IN THE MORNING AND AT NIGHT FOR A TOTAL OF 10MG PER DAY)
     Dates: start: 20191121
  68. XELJANZ [Suspect]
     Active Substance: TOFACITINIB CITRATE
     Dosage: UNK
     Dates: start: 20190919
  69. PROZAC [Suspect]
     Active Substance: FLUOXETINE HYDROCHLORIDE
     Dosage: 20 MG, DAILY
     Dates: start: 20191019
  70. PREDNISONE. [Suspect]
     Active Substance: PREDNISONE
     Dosage: 20 MG, 2X/DAY
     Route: 065
     Dates: start: 20180915
  71. FLOMAX [Concomitant]
     Active Substance: TAMSULOSIN HYDROCHLORIDE
     Dosage: UNK
     Dates: start: 2015
  72. NEXIUM [Concomitant]
     Active Substance: ESOMEPRAZOLE MAGNESIUM
     Indication: BARRETT^S OESOPHAGUS
     Dosage: 22.5 MG, 1X/DAY (22.5MG CAPSULE IN THE MORNING BEFORE BREAKFAST)
     Route: 048
     Dates: start: 2014
  73. NAPROXEN. [Concomitant]
     Active Substance: NAPROXEN
     Indication: ARTHRALGIA
     Dosage: 500 MG, 2X/DAY (TWICE DAILY W/MEAL)
     Route: 065
     Dates: start: 20200107
  74. CLINDAMYCIN HYDROCHLORIDE. [Concomitant]
     Active Substance: CLINDAMYCIN HYDROCHLORIDE
     Indication: DIARRHOEA HAEMORRHAGIC
     Dosage: C-DIFF
     Route: 065
  75. LEVOFLOXACIN. [Concomitant]
     Active Substance: LEVOFLOXACIN
     Indication: INSOMNIA
  76. MESALAMINE. [Concomitant]
     Active Substance: MESALAMINE
     Indication: DIARRHOEA
     Dosage: 1200 MG. 4 AT-A-TIME WITH SUPPER MEAL
     Route: 065
     Dates: start: 20180323, end: 20180828
  77. DIPEN [DILTIAZEM HYDROCHLORIDE] [Concomitant]
     Indication: DIZZINESS
  78. DIPEN [DILTIAZEM HYDROCHLORIDE] [Concomitant]
     Indication: NAUSEA
  79. NEXIUM 24HR [Suspect]
     Active Substance: ESOMEPRAZOLE MAGNESIUM
     Dosage: 20 MG, 1X/DAY
     Route: 048
  80. NEXIUM 24HR [Suspect]
     Active Substance: ESOMEPRAZOLE MAGNESIUM
     Dosage: UNK
     Dates: start: 2014
  81. XELJANZ [Suspect]
     Active Substance: TOFACITINIB CITRATE
     Dosage: UNK, 2X/DAY (1/2 TABS)/(5 MG 1/2 TABS, TWICE DAILY)
  82. FINASTERIDE. [Concomitant]
     Active Substance: FINASTERIDE
     Dosage: UNK
     Dates: start: 2019
  83. NAPROXEN. [Concomitant]
     Active Substance: NAPROXEN
     Dosage: UNK
     Dates: start: 20200106
  84. HYDROCHLOROTHIAZIDE. [Concomitant]
     Active Substance: HYDROCHLOROTHIAZIDE
     Indication: DIARRHOEA
  85. LOSARTAN POTASSIUM. [Concomitant]
     Active Substance: LOSARTAN POTASSIUM
     Indication: DIARRHOEA
     Dosage: 100 MG, UNK
     Route: 065
  86. LEVOFLOXACIN. [Concomitant]
     Active Substance: LEVOFLOXACIN
     Indication: MUSCULAR WEAKNESS
     Dosage: 100 MG, UNK
     Route: 065
  87. LEVOFLOXACIN. [Concomitant]
     Active Substance: LEVOFLOXACIN
     Indication: RESTLESS LEGS SYNDROME
  88. DIPEN [DILTIAZEM HYDROCHLORIDE] [Concomitant]
     Indication: TINNITUS

REACTIONS (10)
  - Red blood cell count decreased [Recovering/Resolving]
  - Monocyte percentage increased [Unknown]
  - Weight increased [Not Recovered/Not Resolved]
  - Swelling [Not Recovered/Not Resolved]
  - Monocyte count increased [Unknown]
  - White blood cell count increased [Recovering/Resolving]
  - Haemoglobin decreased [Recovered/Resolved]
  - Haematocrit decreased [Recovered/Resolved]
  - Neutrophil count increased [Unknown]
  - Lymphocyte count decreased [Recovered/Resolved]

NARRATIVE: CASE EVENT DATE: 201910
